FAERS Safety Report 8111556-X (Version None)
Quarter: 2012Q1

REPORT INFORMATION
  Report Type: 
  Country: None (occurrence: None)
  Receive Date: 20120131
  Receipt Date: 20120112
  Transmission Date: 20120608
  Serious: Yes (Hospitalization)
  Sender: FDA-Public Use
  Company Number: 2011PROUSA00863

PATIENT
  Age: 86 Year
  Sex: Male
  Weight: 79.8 kg

DRUGS (11)
  1. ASPIRIN [Concomitant]
  2. PROVENGE [Suspect]
     Indication: PROSTATE CANCER METASTATIC
     Dosage: 250 ML, SINGLE, INTRAVENOUS
     Route: 042
     Dates: start: 20111121, end: 20111121
  3. PROVENGE [Suspect]
     Indication: PROSTATE CANCER METASTATIC
     Dosage: 250 ML, SINGLE, INTRAVENOUS
     Route: 042
     Dates: start: 20111205, end: 20111205
  4. PROVENGE [Suspect]
  5. METOPROLOL TARTRATE [Concomitant]
  6. METFORMIN HCL [Concomitant]
  7. DENOSUMAB (DENOSUMAB) [Concomitant]
  8. PLENDIL [Concomitant]
  9. ALTACE [Concomitant]
  10. NITROQUICK (GLYCERYL TRINITRATE) [Concomitant]
  11. VYTORIN (EZETIMBE, SIMVASTATIN) [Concomitant]

REACTIONS (9)
  - PULMONARY OEDEMA [None]
  - WHITE BLOOD CELL COUNT INCREASED [None]
  - BODY TEMPERATURE INCREASED [None]
  - HYPOXIA [None]
  - AORTIC STENOSIS [None]
  - MYOCARDIAL INFARCTION [None]
  - HYPOTENSION [None]
  - CHILLS [None]
  - FATIGUE [None]
